FAERS Safety Report 13882024 (Version 1)
Quarter: 2017Q3

REPORT INFORMATION
  Report Type: Spontaneous
  Country: US (occurrence: US)
  Receive Date: 20170818
  Receipt Date: 20170818
  Transmission Date: 20171127
  Serious: Yes (Other)
  Sender: FDA-Public Use
  Company Number: US-COVIS PHARMA B.V.-2017COV00262

PATIENT
  Age: 1 Year
  Sex: Male
  Weight: 9.98 kg

DRUGS (3)
  1. PULMICORT RESPULES [Suspect]
     Active Substance: BUDESONIDE
     Indication: ASTHMA
     Dosage: .5 MG, 1X/DAY
     Route: 055
     Dates: start: 20170805
  2. OMEPRAZOLE MAGNESIUM. [Suspect]
     Active Substance: OMEPRAZOLE MAGNESIUM
     Indication: GASTROOESOPHAGEAL REFLUX DISEASE
     Dosage: 5 ML, 2X/DAY
     Route: 048
     Dates: start: 201607
  3. PREDNISONE. [Suspect]
     Active Substance: PREDNISONE
     Dosage: 5 MG, 1X/DAY
     Route: 048
     Dates: start: 20170805, end: 20170809

REACTIONS (2)
  - Rash papular [Unknown]
  - Asthma [Unknown]

NARRATIVE: CASE EVENT DATE: 20170804
